FAERS Safety Report 5964168-8 (Version None)
Quarter: 2008Q4

REPORT INFORMATION
  Report Type: 
  Country: None (occurrence: None)
  Receive Date: 20081119
  Receipt Date: 20081013
  Transmission Date: 20090506
  Serious: No
  Sender: FDA-Public Use
  Company Number: WAES 0810USA02165

PATIENT
  Age: 85 Year
  Sex: Female

DRUGS (11)
  1. JANUVIA [Suspect]
     Indication: DIABETES MELLITUS
     Dosage: 100 MG/DAILY/PO
     Route: 048
     Dates: start: 20070101
  2. ACTONEL [Concomitant]
  3. AVAPRO [Concomitant]
  4. LASIX [Concomitant]
  5. LIPITOR [Concomitant]
  6. LYRICA [Concomitant]
  7. NORVASC [Concomitant]
  8. PREVACID [Concomitant]
  9. SYNTHROID [Concomitant]
  10. TOPROL-XL [Concomitant]
  11. ZETIA [Concomitant]

REACTIONS (1)
  - WEIGHT INCREASED [None]
